FAERS Safety Report 8806094 (Version 1)
Quarter: 2012Q4

REPORT INFORMATION
  Report Type: Spontaneous
  Country: PT (occurrence: None)
  Receive Date: 20120918
  Receipt Date: 20120918
  Transmission Date: 20130627
  Serious: Yes (Other)
  Sender: FDA-Public Use
  Company Number: 2012S1000630

PATIENT
  Age: 30 Year
  Sex: Female

DRUGS (2)
  1. ALIPZA [Suspect]
     Route: 048
     Dates: start: 20110930, end: 20120507
  2. DROSPIRENONE W/ETHINYLESTRADIOL [Concomitant]

REACTIONS (1)
  - High density lipoprotein decreased [None]
